FAERS Safety Report 6920767-8 (Version None)
Quarter: 2010Q3

REPORT INFORMATION
  Report Type: 
  Country: None (occurrence: None)
  Receive Date: 20100812
  Receipt Date: 20100805
  Transmission Date: 20110219
  Serious: Yes (Hospitalization)
  Sender: FDA-Public Use
  Company Number: FR-SANOFI-AVENTIS-2010SA046082

PATIENT
  Age: 76 Year
  Sex: Female

DRUGS (7)
  1. AMAREL [Suspect]
     Route: 048
  2. KARDEGIC [Suspect]
     Route: 048
  3. FENOFIBRATE [Suspect]
     Route: 048
  4. METFORMIN HCL [Suspect]
     Route: 048
  5. NIDREL [Suspect]
     Route: 048
  6. ALLOPURINOL [Suspect]
     Route: 048
  7. TENORMIN [Suspect]
     Route: 048

REACTIONS (5)
  - ASCITES [None]
  - CHOLESTASIS [None]
  - CYTOLYTIC HEPATITIS [None]
  - HEPATIC FAILURE [None]
  - JAUNDICE [None]
